FAERS Safety Report 8811436 (Version 2)
Quarter: 2013Q4

REPORT INFORMATION
  Report Type: Spontaneous
  Country: SE (occurrence: SE)
  Receive Date: 20120927
  Receipt Date: 20131004
  Transmission Date: 20140711
  Serious: No
  Sender: FDA-Public Use
  Company Number: SE-SANOFI-AVENTIS-2012SA068672

PATIENT
  Age: 52 Year
  Sex: Female

DRUGS (1)
  1. OXALIPLATIN WINTHROP [Suspect]
     Indication: COLON CANCER STAGE 0
     Route: 065
     Dates: end: 20111019

REACTIONS (2)
  - Dyskinesia [Unknown]
  - Aphasia [Unknown]
